FAERS Safety Report 24890524 (Version 1)
Quarter: 2025Q1

REPORT INFORMATION
  Report Type: Spontaneous
  Country: US (occurrence: US)
  Receive Date: 20250127
  Receipt Date: 20250127
  Transmission Date: 20250408
  Serious: No
  Sender: PFIZER
  Company Number: US-PFIZER INC-PV202500009927

PATIENT
  Age: 43 Year
  Sex: Female

DRUGS (6)
  1. DEMEROL [Suspect]
     Active Substance: MEPERIDINE HYDROCHLORIDE
  2. PAROXETINE [Concomitant]
     Active Substance: PAROXETINE
  3. CYCLOSPORINE [Concomitant]
     Active Substance: CYCLOSPORINE
  4. EPINEPHRINE [Concomitant]
     Active Substance: EPINEPHRINE
  5. MONTELUKAST [Concomitant]
     Active Substance: MONTELUKAST
  6. LEVOTHYROXINE SODIUM [Concomitant]
     Active Substance: LEVOTHYROXINE SODIUM

REACTIONS (3)
  - Dizziness [Unknown]
  - Headache [Unknown]
  - Rash pruritic [Unknown]
